FAERS Safety Report 6704660-1 (Version None)
Quarter: 2010Q2

REPORT INFORMATION
  Report Type: 
  Country: None (occurrence: None)
  Receive Date: 20100430
  Receipt Date: 20100422
  Transmission Date: 20101027
  Serious: Yes (Hospitalization)
  Sender: FDA-Public Use
  Company Number: FR-JNJFOC-20100405437

PATIENT
  Age: 79 Year
  Sex: Male

DRUGS (6)
  1. TAVANIC [Suspect]
     Indication: OSTEITIS
     Route: 048
     Dates: start: 20100211, end: 20100215
  2. AMOXICILLIN AND CLAVULANATE POTASSIUM [Suspect]
     Indication: OSTEITIS
     Route: 048
     Dates: start: 20100211, end: 20100215
  3. CLAMOXYL [Suspect]
     Indication: OSTEITIS
     Route: 048
     Dates: start: 20100211, end: 20100215
  4. FLUINDIONE [Concomitant]
     Route: 065
  5. TAHOR [Concomitant]
     Route: 065
  6. AMIODARONE HCL [Concomitant]
     Route: 065

REACTIONS (4)
  - PURPURA [None]
  - RENAL FAILURE ACUTE [None]
  - SEPTIC SHOCK [None]
  - TUBULOINTERSTITIAL NEPHRITIS [None]
